FAERS Safety Report 8212188-5 (Version None)
Quarter: 2012Q1

REPORT INFORMATION
  Report Type: 
  Country: None (occurrence: None)
  Receive Date: 20120315
  Receipt Date: 20120314
  Transmission Date: 20120608
  Serious: Yes (Hospitalization)
  Sender: FDA-Public Use
  Company Number: CN-ROCHE-1048629

PATIENT
  Age: 79 Year
  Sex: Female

DRUGS (2)
  1. OXALIPLATIN [Concomitant]
     Indication: RECTAL CANCER
     Dates: start: 20120106
  2. XELODA [Suspect]
     Indication: RECTAL CANCER
     Route: 048
     Dates: start: 20120106, end: 20120117

REACTIONS (1)
  - INTESTINAL OBSTRUCTION [None]
